FAERS Safety Report 7734062-0 (Version None)
Quarter: 2011Q3

REPORT INFORMATION
  Report Type: 
  Country: None (occurrence: None)
  Receive Date: 20110907
  Receipt Date: 20110823
  Transmission Date: 20111222
  Serious: Yes (Hospitalization)
  Sender: FDA-Public Use
  Company Number: US-ROCHE-799231

PATIENT
  Sex: Female
  Weight: 78.8 kg

DRUGS (2)
  1. LAPATINIB [Suspect]
     Indication: BREAST CANCER
     Dosage: 1250 MG, X1
     Route: 048
  2. CAPECITABINE [Suspect]
     Indication: BREAST CANCER
     Dosage: 1800 MG, X2
     Route: 048

REACTIONS (1)
  - ENTERITIS [None]
